FAERS Safety Report 8605426-8 (Version None)
Quarter: 2012Q3

REPORT INFORMATION
  Report Type: 
  Country: None (occurrence: None)
  Receive Date: 20120820
  Receipt Date: 20090809
  Transmission Date: 20120928
  Serious: Yes (Other)
  Sender: FDA-Public Use
  Company Number: US-ASTRAZENECA-2009UW07763

PATIENT
  Age: 68 Year
  Sex: Female

DRUGS (5)
  1. SYMBICORT [Suspect]
     Route: 055
  2. STEROIDS [Concomitant]
  3. ARIMIDEX [Suspect]
     Route: 048
     Dates: start: 20081001
  4. NEXIUM [Suspect]
     Route: 048
  5. RADIATION THERAPY [Concomitant]

REACTIONS (7)
  - TREMOR [None]
  - COLITIS ULCERATIVE [None]
  - RECTAL HAEMORRHAGE [None]
  - FATIGUE [None]
  - INAPPROPRIATE SCHEDULE OF DRUG ADMINISTRATION [None]
  - DECREASED APPETITE [None]
  - HAEMORRHAGE [None]
